FAERS Safety Report 24781057 (Version 1)
Quarter: 2024Q4

REPORT INFORMATION
  Report Type: Spontaneous
  Country: CN (occurrence: CN)
  Receive Date: 20241227
  Receipt Date: 20241227
  Transmission Date: 20250115
  Serious: Yes (Other)
  Sender: SANDOZ
  Company Number: CN-SANDOZ-SDZ2024CN105405

PATIENT
  Age: 59 Year
  Sex: Male
  Weight: 45 kg

DRUGS (2)
  1. VORICONAZOLE [Suspect]
     Active Substance: VORICONAZOLE
     Indication: Chronic obstructive pulmonary disease
     Dosage: 200 MG, QD
     Route: 048
     Dates: start: 20241216, end: 20241220
  2. VORICONAZOLE [Suspect]
     Active Substance: VORICONAZOLE
     Indication: Lower respiratory tract infection

REACTIONS (1)
  - Disorganised speech [Unknown]

NARRATIVE: CASE EVENT DATE: 20241219
